FAERS Safety Report 5511212-8 (Version None)
Quarter: 2007Q4

REPORT INFORMATION
  Report Type: 
  Country: None (occurrence: None)
  Receive Date: 20071109
  Receipt Date: 20071101
  Transmission Date: 20080405
  Serious: Yes (Life-Threatening, Hospitalization, Disabling)
  Sender: FDA-Public Use
  Company Number: IE-PURDUE-GBR_2007_0003391

PATIENT
  Sex: Female

DRUGS (1)
  1. OXYCONTIN [Suspect]
     Indication: BACK PAIN
     Dosage: 10 MG, BID
     Route: 048

REACTIONS (8)
  - AMNESIA [None]
  - BLOOD ALCOHOL INCREASED [None]
  - BRAIN DAMAGE [None]
  - CHOKING [None]
  - LOSS OF CONSCIOUSNESS [None]
  - RESPIRATORY ARREST [None]
  - VOMITING [None]
  - WALKING AID USER [None]
